FAERS Safety Report 21630958 (Version 1)
Quarter: 2022Q4

REPORT INFORMATION
  Report Type: Spontaneous
  Country: US (occurrence: US)
  Receive Date: 20221123
  Receipt Date: 20221123
  Transmission Date: 20230113
  Serious: Yes (Death, Hospitalization)
  Sender: FDA-Public Use
  Company Number: US-MTPC-MTDA2022-0031488

PATIENT
  Age: 69 Year
  Sex: Male

DRUGS (1)
  1. RADICAVA [Suspect]
     Active Substance: EDARAVONE
     Indication: Amyotrophic lateral sclerosis
     Route: 065

REACTIONS (6)
  - Cardiac arrest [Fatal]
  - Aspiration [Fatal]
  - Sepsis [Unknown]
  - Rhinovirus infection [Unknown]
  - Pneumonia bacterial [Unknown]
  - Urinary tract infection [Unknown]

NARRATIVE: CASE EVENT DATE: 20221113
